FAERS Safety Report 7620224-X (Version None)
Quarter: 2011Q3

REPORT INFORMATION
  Report Type: 
  Country: None (occurrence: None)
  Receive Date: 20110719
  Receipt Date: 20110707
  Transmission Date: 20111222
  Serious: Yes (Other)
  Sender: FDA-Public Use
  Company Number: PHHY2011US61678

PATIENT
  Sex: Female

DRUGS (2)
  1. GILENYA [Suspect]
     Dosage: 0.5 MG, DAILY
     Route: 048
  2. GILENYA [Suspect]
     Indication: MULTIPLE SCLEROSIS
     Dosage: UNK UKN, UNK
     Route: 048
     Dates: start: 20060101

REACTIONS (4)
  - MIDDLE EAR DISORDER [None]
  - TYMPANIC MEMBRANE PERFORATION [None]
  - PHARYNGITIS STREPTOCOCCAL [None]
  - EAR HAEMORRHAGE [None]
